FAERS Safety Report 7063531-4 (Version None)
Quarter: 2010Q4

REPORT INFORMATION
  Report Type: 
  Country: None (occurrence: None)
  Receive Date: 20101026
  Receipt Date: 20100513
  Transmission Date: 20110411
  Serious: No
  Sender: FDA-Public Use
  Company Number: US-ABBOTT-10P-163-0645546-00

PATIENT

DRUGS (6)
  1. LUPRON DEPOT [Suspect]
     Indication: BREAST CANCER
  2. LUPRON DEPOT [Suspect]
     Indication: BLOOD OESTROGEN INCREASED
  3. VITAMIN D [Concomitant]
     Indication: SUPPLEMENTATION THERAPY
  4. FISH OIL [Concomitant]
     Indication: SUPPLEMENTATION THERAPY
  5. AROMASIN [Concomitant]
     Indication: NEOPLASM MALIGNANT
     Dates: start: 20100401
  6. AROMASIN [Concomitant]
     Indication: PROPHYLAXIS

REACTIONS (3)
  - BONE DENSITY DECREASED [None]
  - GINGIVAL BLEEDING [None]
  - ORAL DISORDER [None]
